FAERS Safety Report 4752724-4 (Version None)
Quarter: 2005Q3

REPORT INFORMATION
  Report Type: 
  Country: None (occurrence: None)
  Receive Date: 20050823
  Receipt Date: 20050726
  Transmission Date: 20060218
  Serious: Yes (Disabling)
  Sender: FDA-Public Use
  Company Number: 2005001434

PATIENT
  Age: 83 Year
  Sex: Female
  Weight: 122 kg

DRUGS (10)
  1. TARCEVA [Suspect]
     Indication: NON-SMALL CELL LUNG CANCER
     Dosage: 150 MG (QD), ORAL
     Route: 048
     Dates: start: 20050501
  2. GLUCOTROL [Concomitant]
  3. METHYLDOPA [Concomitant]
  4. DYAZIDE [Concomitant]
  5. MULTIVITAMIN [Concomitant]
  6. CALCIUM (CALCIUM) [Concomitant]
  7. ALEVE [Concomitant]
  8. MINOCIN [Concomitant]
  9. ECONOPRED (PREDNISOLONE ACETATE) [Concomitant]
  10. METRO LOTION (METRONIDAZOLE) [Concomitant]

REACTIONS (4)
  - BLINDNESS UNILATERAL [None]
  - CATARACT OPERATION COMPLICATION [None]
  - OCULAR VASCULAR DISORDER [None]
  - VASCULAR RUPTURE [None]
